FAERS Safety Report 16666958 (Version 2)
Quarter: 2019Q3

REPORT INFORMATION
  Report Type: Spontaneous
  Country: US (occurrence: US)
  Receive Date: 20190805
  Receipt Date: 20190826
  Transmission Date: 20191004
  Serious: Yes (Hospitalization, Other)
  Sender: FDA-Public Use
  Company Number: US-ROCHE-2356201

PATIENT
  Sex: Female

DRUGS (3)
  1. VALTREX [Concomitant]
     Active Substance: VALACYCLOVIR HYDROCHLORIDE
     Dosage: ONGOING: NO
     Route: 065
  2. ACTEMRA [Suspect]
     Active Substance: TOCILIZUMAB
     Route: 058
  3. ACTEMRA [Suspect]
     Active Substance: TOCILIZUMAB
     Indication: PRODUCT USED FOR UNKNOWN INDICATION
     Route: 058
     Dates: start: 20190713

REACTIONS (7)
  - Influenza [Recovered/Resolved]
  - Headache [Recovering/Resolving]
  - Pulmonary hypertension [Recovered/Resolved]
  - Intentional product use issue [Unknown]
  - Bronchitis [Unknown]
  - Pain [Recovering/Resolving]
  - Off label use [Unknown]
